FAERS Safety Report 9897126 (Version 3)
Quarter: 2014Q1

REPORT INFORMATION
  Report Type: Report from Study
  Country: CO (occurrence: CO)
  Receive Date: 20140214
  Receipt Date: 20140328
  Transmission Date: 20141002
  Serious: Yes (Hospitalization)
  Sender: FDA-Public Use
  Company Number: CO-ROCHE-1348727

PATIENT
  Age: 63 Year
  Sex: Male
  Weight: 69 kg

DRUGS (5)
  1. RANIBIZUMAB [Suspect]
     Indication: DIABETIC RETINAL OEDEMA
     Dosage: STARTED SINCE 2 YEARS APPROXIMATELY. MOST RECENT DOSE RECEIVED 05 MONTHS AGO.
     Route: 050
  2. LOSARTAN [Concomitant]
  3. ACETYLSALICYLIC ACID [Concomitant]
  4. INSULINE [Concomitant]
  5. METFORMIN [Concomitant]

REACTIONS (3)
  - Haematuria [Unknown]
  - Renal disorder [Not Recovered/Not Resolved]
  - Urinary tract infection [Unknown]
